FAERS Safety Report 8437570-2 (Version None)
Quarter: 2012Q2

REPORT INFORMATION
  Report Type: 
  Country: None (occurrence: None)
  Receive Date: 20120614
  Receipt Date: 20120409
  Transmission Date: 20120825
  Serious: No
  Sender: FDA-Public Use
  Company Number: US-AMGEN-USASP2012022230

PATIENT
  Sex: Female

DRUGS (5)
  1. MULTIVITAMIN                       /00097801/ [Concomitant]
     Dosage: UNK
  2. CALCIUM [Concomitant]
     Dosage: UNK
  3. PROLIA [Suspect]
     Indication: OSTEOPOROSIS POSTMENOPAUSAL
     Dosage: 60 MG, Q6MO
     Dates: start: 20110101
  4. EVISTA [Concomitant]
     Dosage: UNK
  5. LORATADINE [Concomitant]

REACTIONS (6)
  - HOUSE DUST ALLERGY [None]
  - DRUG HYPERSENSITIVITY [None]
  - RASH [None]
  - INSOMNIA [None]
  - DYSPEPSIA [None]
  - ECZEMA [None]
